FAERS Safety Report 7222660-2 (Version None)
Quarter: 2011Q1

REPORT INFORMATION
  Report Type: 
  Country: None (occurrence: None)
  Receive Date: 20110106
  Receipt Date: 20110106
  Transmission Date: 20110831
  Serious: Yes (Life-Threatening)
  Sender: FDA-Public Use
  Company Number: None

PATIENT
  Sex: Female
  Weight: 63.5036 kg

DRUGS (3)
  1. FENTANYL [Suspect]
     Indication: SPINAL COLUMN STENOSIS
     Dosage: 12MCG EVERY 72 HOURS PATCH
     Dates: start: 20101207, end: 20101216
  2. FENTANYL [Suspect]
     Indication: INTERVERTEBRAL DISC PROTRUSION
     Dosage: 12MCG EVERY 72 HOURS PATCH
     Dates: start: 20101207, end: 20101216
  3. FENTANYL [Suspect]
     Indication: COMPRESSION FRACTURE
     Dosage: 12MCG EVERY 72 HOURS PATCH
     Dates: start: 20101207, end: 20101216

REACTIONS (4)
  - PAIN [None]
  - DYSPNOEA [None]
  - PHARYNGEAL OEDEMA [None]
  - PRURITUS GENERALISED [None]
